FAERS Safety Report 4387860-8 (Version None)
Quarter: 2004Q2

REPORT INFORMATION
  Report Type: 
  Country: None (occurrence: None)
  Receive Date: 20040630
  Receipt Date: 19981013
  Transmission Date: 20050107
  Serious: Yes (Congenital Anomaly, Other)
  Sender: FDA-Public Use
  Company Number: 98USA11514

PATIENT
  Sex: Female
  Weight: 3 kg

DRUGS (2)
  1. TEGRETOL [Suspect]
     Route: 064
  2. MULTIVITAMIN [Concomitant]
     Route: 064

REACTIONS (5)
  - DEAFNESS [None]
  - DRUG EXPOSURE DURING PREGNANCY [None]
  - EAR MALFORMATION [None]
  - FEEDING PROBLEM IN NEWBORN [None]
  - WEIGHT DECREASED [None]
